FAERS Safety Report 5833758-5 (Version None)
Quarter: 2008Q3

REPORT INFORMATION
  Report Type: 
  Country: None (occurrence: None)
  Receive Date: 20080801
  Receipt Date: 20080721
  Transmission Date: 20090109
  Serious: Yes (Hospitalization)
  Sender: FDA-Public Use
  Company Number: 2008EK000007

PATIENT
  Sex: 0

DRUGS (2)
  1. CARDENE [Suspect]
     Indication: DRUG USE FOR UNKNOWN INDICATION
     Dosage: IV
     Route: 042
  2. ONYX [Suspect]
     Indication: THERAPEUTIC EMBOLISATION
     Dosage: IART
     Route: 013

REACTIONS (2)
  - POST PROCEDURAL COMPLICATION [None]
  - PULMONARY OEDEMA [None]
